FAERS Safety Report 25378204 (Version 2)
Quarter: 2025Q2

REPORT INFORMATION
  Report Type: Spontaneous
  Country: SI (occurrence: SI)
  Receive Date: 20250530
  Receipt Date: 20250604
  Transmission Date: 20250717
  Serious: Yes (Death)
  Sender: NOVARTIS
  Company Number: SI-002147023-NVSC2025SI086594

PATIENT
  Sex: Male

DRUGS (1)
  1. ENTRESTO [Suspect]
     Active Substance: SACUBITRIL\VALSARTAN
     Indication: Heart failure with midrange ejection fraction
     Route: 065

REACTIONS (9)
  - Death [Fatal]
  - Off label use [Fatal]
  - Diabetic complication [Fatal]
  - Hypertension [Fatal]
  - Chronic kidney disease [Fatal]
  - Hyperlipidaemia [Fatal]
  - Pancreatic failure [Fatal]
  - Coronary artery disease [Fatal]
  - Hypoglycaemic coma [Fatal]
